FAERS Safety Report 5416335-X (Version None)
Quarter: 2007Q3

REPORT INFORMATION
  Report Type: 
  Country: None (occurrence: None)
  Receive Date: 20070816
  Receipt Date: 20070807
  Transmission Date: 20080115
  Serious: Yes (Other)
  Sender: FDA-Public Use
  Company Number: PHEH2007US05789

PATIENT
  Age: 48 Year
  Sex: Female

DRUGS (11)
  1. ZELNORM [Suspect]
     Indication: IRRITABLE BOWEL SYNDROME
     Dosage: 6 MG, BID
     Dates: start: 20061201, end: 20070418
  2. ZYRTEC-D [Concomitant]
  3. SINGULAIR [Concomitant]
  4. PREVACID [Concomitant]
  5. PROVENTIL [Concomitant]
  6. ADVAIR DISKUS 100/50 [Concomitant]
  7. RHINOCORT [Concomitant]
  8. AZELIN [Concomitant]
  9. ACTOS [Concomitant]
  10. VYTORIN [Concomitant]
  11. THERAGRAN-M [Concomitant]

REACTIONS (4)
  - BACK PAIN [None]
  - HEART RATE INCREASED [None]
  - PALPITATIONS [None]
  - SURGERY [None]
